FAERS Safety Report 5028957-9 (Version None)
Quarter: 2006Q2

REPORT INFORMATION
  Report Type: 
  Country: None (occurrence: None)
  Receive Date: 20060501
  Receipt Date: 20060104
  Transmission Date: 20061013
  Serious: No
  Sender: FDA-Public Use
  Company Number: 200610196US

PATIENT
  Sex: Male

DRUGS (2)
  1. KETEK [Suspect]
     Indication: BRONCHITIS
     Dosage: PO
     Route: 048
  2. KETEK [Suspect]
     Indication: SINUSITIS
     Dosage: PO
     Route: 048

REACTIONS (1)
  - DRUG INEFFECTIVE [None]
